FAERS Safety Report 19163892 (Version 1)
Quarter: 2021Q2

REPORT INFORMATION
  Report Type: Spontaneous
  Country: FR (occurrence: FR)
  Receive Date: 20210421
  Receipt Date: 20210421
  Transmission Date: 20210717
  Serious: Yes (Life-Threatening, Other)
  Sender: FDA-Public Use
  Company Number: FR-SHILPA MEDICARE LIMITED-SML-FR-2021-00462

PATIENT
  Age: 0 Year
  Sex: Male
  Weight: 7 kg

DRUGS (2)
  1. FLUDARABINE [Concomitant]
     Active Substance: FLUDARABINE PHOSPHATE
     Indication: BONE MARROW CONDITIONING REGIMEN
     Route: 041
     Dates: start: 20210204, end: 20210208
  2. BUSULFAN, UNKNOWN [Suspect]
     Active Substance: BUSULFAN
     Indication: BONE MARROW CONDITIONING REGIMEN
     Route: 041
     Dates: start: 20210202, end: 20210205

REACTIONS (2)
  - Venoocclusive disease [Recovered/Resolved]
  - Skin hypopigmentation [Recovering/Resolving]

NARRATIVE: CASE EVENT DATE: 202103
